FAERS Safety Report 4431046-5 (Version None)
Quarter: 2004Q3

REPORT INFORMATION
  Report Type: 
  Country: None (occurrence: None)
  Receive Date: 20040824
  Receipt Date: 20030820
  Transmission Date: 20050211
  Serious: No
  Sender: FDA-Public Use
  Company Number: US-BRISTOL-MYERS SQUIBB COMPANY-12362141

PATIENT
  Age: 46 Year
  Sex: Female
  Weight: 66 kg

DRUGS (2)
  1. MUCOMYST [Suspect]
     Indication: OVERDOSE
     Route: 048
  2. CLOZARIL [Concomitant]

REACTIONS (4)
  - NAUSEA [None]
  - RHINORRHOEA [None]
  - STOMATITIS [None]
  - VOMITING [None]
